FAERS Safety Report 7360660-2 (Version None)
Quarter: 2011Q1

REPORT INFORMATION
  Report Type: 
  Country: None (occurrence: None)
  Receive Date: 20110310
  Receipt Date: 20110301
  Transmission Date: 20110831
  Serious: Yes (Disabling)
  Sender: FDA-Public Use
  Company Number: GB-1185259

PATIENT
  Age: 56 Year
  Sex: Female
  Weight: 77 kg

DRUGS (3)
  1. TROPICAMIDE [Suspect]
     Indication: OPHTHALMOLOGICAL EXAMINATION
     Dosage: (OPHTHALMIC)
     Route: 047
     Dates: start: 20110110, end: 20110110
  2. METFORMIN [Concomitant]
  3. SIMVASTATIN [Concomitant]

REACTIONS (1)
  - ANGLE CLOSURE GLAUCOMA [None]
